FAERS Safety Report 11715578 (Version 1)
Quarter: 2015Q4

REPORT INFORMATION
  Report Type: Report from Study
  Country: FR (occurrence: FR)
  Receive Date: 20151109
  Receipt Date: 20151109
  Transmission Date: 20160304
  Serious: Yes (Other)
  Sender: FDA-Public Use
  Company Number: FR-JNJFOC-20150905362

PATIENT

DRUGS (3)
  1. RISPERDAL [Suspect]
     Active Substance: RISPERIDONE
     Indication: PSYCHOTIC DISORDER
     Route: 065
  2. RISPERDAL [Suspect]
     Active Substance: RISPERIDONE
     Indication: PSYCHOTIC DISORDER
     Route: 065
  3. RISPERDAL [Suspect]
     Active Substance: RISPERIDONE
     Indication: PSYCHOTIC DISORDER
     Dosage: ONCE EVENING
     Route: 065

REACTIONS (13)
  - Amnesia [Unknown]
  - Suicide attempt [Unknown]
  - Depression [Unknown]
  - Adverse event [Unknown]
  - Diarrhoea [Unknown]
  - Mood altered [Unknown]
  - Dyskinesia [Unknown]
  - Abdominal pain upper [Unknown]
  - Anger [Unknown]
  - Disturbance in attention [Unknown]
  - Impulse-control disorder [Unknown]
  - Drug ineffective [Unknown]
  - Hallucination, visual [Unknown]
